FAERS Safety Report 17965129 (Version 4)
Quarter: 2020Q3

REPORT INFORMATION
  Report Type: Report from Study
  Country: DE (occurrence: DE)
  Receive Date: 20200630
  Receipt Date: 20200823
  Transmission Date: 20201103
  Serious: Yes (Hospitalization)
  Sender: FDA-Public Use
  Company Number: DE-ACTELION-A-NJ2020-206662

PATIENT
  Age: 57 Year
  Sex: Female

DRUGS (5)
  1. VENTAVIS [Suspect]
     Active Substance: ILOPROST
     Dosage: 10 MCG, QD
     Route: 055
  2. VENTAVIS [Suspect]
     Active Substance: ILOPROST
     Indication: PULMONARY ARTERIAL HYPERTENSION
     Dosage: 10 MCG, 6 ID A DAY
     Route: 055
     Dates: start: 20200311, end: 20200803
  3. VENTAVIS [Suspect]
     Active Substance: ILOPROST
     Dosage: 10 MCG, Q4HRS
     Route: 055
  4. VENTAVIS [Suspect]
     Active Substance: ILOPROST
     Dosage: UNK
     Route: 055
     Dates: start: 202008
  5. VENTAVIS [Suspect]
     Active Substance: ILOPROST
     Indication: RHEUMATIC DISORDER
     Dosage: UNK, QD
     Route: 055
     Dates: start: 2020

REACTIONS (4)
  - General physical health deterioration [Recovering/Resolving]
  - Inappropriate schedule of product administration [Unknown]
  - Pneumonia [Recovered/Resolved]
  - Bronchitis [Recovering/Resolving]

NARRATIVE: CASE EVENT DATE: 202003
